FAERS Safety Report 9457447 (Version 3)
Quarter: 2013Q3

REPORT INFORMATION
  Report Type: Report from Study
  Country: BE (occurrence: BE)
  Receive Date: 20130814
  Receipt Date: 20130903
  Transmission Date: 20140515
  Serious: Yes (Life-Threatening, Hospitalization)
  Sender: FDA-Public Use
  Company Number: BE-JNJFOC-20130800454

PATIENT
  Age: 29 Year
  Sex: Male
  Weight: 53.1 kg

DRUGS (6)
  1. REMICADE [Suspect]
     Indication: COLITIS ULCERATIVE
     Route: 042
     Dates: start: 20130516
  2. REMICADE [Suspect]
     Indication: COLITIS ULCERATIVE
     Route: 042
     Dates: start: 2013
  3. PANTOMED [Concomitant]
     Indication: PROPHYLAXIS
     Route: 048
     Dates: start: 20130531
  4. COLITOFALK [Concomitant]
     Indication: COLITIS ULCERATIVE
     Route: 048
     Dates: start: 200905
  5. IMURAN [Concomitant]
     Indication: COLITIS ULCERATIVE
     Route: 048
     Dates: start: 201007
  6. SPASMOMEN [Concomitant]
     Indication: MUSCLE SPASMS
     Route: 048
     Dates: start: 20130531

REACTIONS (4)
  - Colitis ulcerative [Recovering/Resolving]
  - Normochromic normocytic anaemia [Unknown]
  - Hypoalbuminaemia [Unknown]
  - Weight decreased [Unknown]
